FAERS Safety Report 18067372 (Version 3)
Quarter: 2020Q3

REPORT INFORMATION
  Report Type: Other
  Country: IT (occurrence: IT)
  Receive Date: 20200724
  Receipt Date: 20200902
  Transmission Date: 20201103
  Serious: Yes (Other)
  Sender: FDA-Public Use
  Company Number: IT-ROCHE-2646589

PATIENT
  Age: 36 Year
  Sex: Female

DRUGS (18)
  1. ELETRIPTAN HYDROBROMIDE. [Concomitant]
     Active Substance: ELETRIPTAN HYDROBROMIDE
     Indication: HEADACHE
     Route: 048
     Dates: start: 20200131
  2. PARACETAMOLO [Concomitant]
     Active Substance: ACETAMINOPHEN
     Indication: PREMEDICATION
     Dosage: DATE OF TREATMENT: 23/SEP/2019, 08/JUL/2020
     Route: 042
     Dates: start: 20190905, end: 20190905
  3. OCRELIZUMAB. [Suspect]
     Active Substance: OCRELIZUMAB
     Dosage: 600 MG/500 ML
     Route: 042
     Dates: start: 20200708, end: 20200708
  4. PREGABALIN. [Concomitant]
     Active Substance: PREGABALIN
     Route: 048
     Dates: start: 20181208
  5. METHYLPREDNISOLONE. [Concomitant]
     Active Substance: METHYLPREDNISOLONE
     Indication: MULTIPLE SCLEROSIS
     Route: 042
     Dates: start: 20200131, end: 20200202
  6. SOLU?MEDROL [Concomitant]
     Active Substance: METHYLPREDNISOLONE SODIUM SUCCINATE
     Indication: PREMEDICATION
     Route: 042
     Dates: start: 20190905, end: 20190905
  7. METHYLPREDNISOLONE. [Concomitant]
     Active Substance: METHYLPREDNISOLONE
     Route: 048
     Dates: start: 20200203, end: 20200204
  8. SOLU?MEDROL [Concomitant]
     Active Substance: METHYLPREDNISOLONE SODIUM SUCCINATE
     Route: 042
     Dates: start: 20200708, end: 20200708
  9. ZANTAC [Concomitant]
     Active Substance: RANITIDINE HYDROCHLORIDE
     Indication: PREMEDICATION
     Route: 042
     Dates: start: 20190905, end: 20190905
  10. PANTOPRAZOLO [Concomitant]
     Active Substance: PANTOPRAZOLE SODIUM
     Indication: PREMEDICATION
     Route: 042
     Dates: start: 20200708, end: 20200708
  11. CINNARIZINE [Concomitant]
     Active Substance: CINNARIZINE
     Indication: HEADACHE
     Route: 048
     Dates: start: 20181208, end: 20191216
  12. OCRELIZUMAB. [Suspect]
     Active Substance: OCRELIZUMAB
     Indication: MULTIPLE SCLEROSIS
     Dosage: 300 MG/250 ML
     Route: 042
     Dates: start: 20190905, end: 20190905
  13. CINNARIZINE [Concomitant]
     Active Substance: CINNARIZINE
     Route: 048
     Dates: start: 20191216
  14. SOLU?MEDROL [Concomitant]
     Active Substance: METHYLPREDNISOLONE SODIUM SUCCINATE
     Route: 042
     Dates: start: 20190923, end: 20190923
  15. VENLAFAXINE [Concomitant]
     Active Substance: VENLAFAXINE HYDROCHLORIDE
     Indication: HEADACHE
     Route: 048
     Dates: start: 20191216
  16. ZANTAC [Concomitant]
     Active Substance: RANITIDINE HYDROCHLORIDE
     Route: 042
     Dates: start: 20190923, end: 20190923
  17. TRIMETON [Concomitant]
     Active Substance: CHLORPHENIRAMINE MALEATE
     Indication: PREMEDICATION
     Route: 042
     Dates: start: 20200708, end: 20200708
  18. OCRELIZUMAB. [Suspect]
     Active Substance: OCRELIZUMAB
     Dosage: 300 MG/250 ML
     Route: 042
     Dates: start: 20190923, end: 20190923

REACTIONS (3)
  - C-reactive protein increased [Not Recovered/Not Resolved]
  - Polymerase chain reaction positive [Not Recovered/Not Resolved]
  - Escherichia infection [Not Recovered/Not Resolved]

NARRATIVE: CASE EVENT DATE: 20200423
